FAERS Safety Report 8922835 (Version 4)
Quarter: 2015Q4

REPORT INFORMATION
  Report Type: Report from Study
  Country: US (occurrence: US)
  Receive Date: 20121123
  Receipt Date: 20151016
  Transmission Date: 20160305
  Serious: Yes (Death, Other)
  Sender: FDA-Public Use
  Company Number: US-ROCHE-1158446

PATIENT

DRUGS (5)
  1. SORAFENIB [Suspect]
     Active Substance: SORAFENIB
     Indication: NEOPLASM
     Dosage: ADMINISTERED AS A COMBINATION OF CAPSULES (COMPOUNDED FROM THE COMMERCIALLY AVAILABLE 200 MG TABLETS
     Route: 048
  2. SORAFENIB [Suspect]
     Active Substance: SORAFENIB
     Indication: LEUKAEMIA
  3. CYCLOPHOSPHAMIDE. [Suspect]
     Active Substance: CYCLOPHOSPHAMIDE
     Indication: LEUKAEMIA
  4. BEVACIZUMAB [Suspect]
     Active Substance: BEVACIZUMAB
     Indication: NEOPLASM
     Dosage: OVER 90 MINUTES WITH SUBSEQUENT DOSES OVER 60 MINUTES AND THEN 30 MINUTES IF TOLERATED. DOSE WAS ESC
     Route: 042
  5. CYCLOPHOSPHAMIDE. [Suspect]
     Active Substance: CYCLOPHOSPHAMIDE
     Indication: NEOPLASM
     Dosage: ADMINISTERED AS LIQUID OR TABLET. DOSE WAS ESCALATED.
     Route: 048

REACTIONS (21)
  - Cystitis haemorrhagic [Unknown]
  - Palmar-plantar erythrodysaesthesia syndrome [Unknown]
  - Hypophosphataemia [Unknown]
  - Vomiting [Unknown]
  - Pneumothorax [Fatal]
  - Neutropenia [Unknown]
  - Thrombosis [Unknown]
  - Lymphopenia [Unknown]
  - Febrile neutropenia [Unknown]
  - Hypokalaemia [Unknown]
  - Anaemia [Unknown]
  - Neutropenic infection [Unknown]
  - Rash [Unknown]
  - Weight decreased [Unknown]
  - Decreased appetite [Unknown]
  - Lipase increased [Unknown]
  - Thrombocytopenia [Unknown]
  - Bladder spasm [Unknown]
  - Bladder pain [Unknown]
  - Hyponatraemia [Unknown]
  - White blood cell count decreased [Unknown]
